FAERS Safety Report 14353737 (Version 2)
Quarter: 2018Q1

REPORT INFORMATION
  Report Type: Spontaneous
  Country: ES (occurrence: ES)
  Receive Date: 20180105
  Receipt Date: 20180326
  Transmission Date: 20180509
  Serious: Yes (Congenital Anomaly, Other)
  Sender: FDA-Public Use
  Company Number: ES-BAXTER-2017BAX045612

PATIENT
  Age: 2 Day
  Sex: Male
  Weight: 2 kg

DRUGS (9)
  1. PREDNISONE. [Suspect]
     Active Substance: PREDNISONE
     Indication: FOETAL EXPOSURE DURING PREGNANCY
     Dosage: MOTHER DOSE: 200 MG IN TOTAL FOR BURKITT^S LYMPHOMA VIA ORAL ROUTE
     Route: 064
     Dates: start: 20170814, end: 20170926
  2. RITUXIMAB. [Suspect]
     Active Substance: RITUXIMAB
     Indication: FOETAL EXPOSURE DURING PREGNANCY
     Dosage: MOTHER DOSE: CYCLICAL TREATMENT WITH 724 MG FOR BURKITT^S LYMPHOMA VIA INTRAVENOUS NOT OTHERWISE SPE
     Route: 064
     Dates: start: 20170814, end: 20170926
  3. VINCRISTINE SULPHATE [Suspect]
     Active Substance: VINCRISTINE SULFATE
     Indication: FOETAL EXPOSURE DURING PREGNANCY
     Dosage: MOTHER DOSE: CYCLICAL TREATMENT WITH 2 MG FOR BURKITT^S LYMPHOMA VIA INTRAVENOUS NOT OTHERWISE SPECI
     Route: 064
     Dates: start: 20170814, end: 20170926
  4. METHYLPREDNISOLONE. [Suspect]
     Active Substance: METHYLPREDNISOLONE
     Indication: FOETAL EXPOSURE DURING PREGNANCY
     Dosage: MOTHER DOSE: CYCLICAL TREATMENT WITH 125 MG FOR BURKITT^S LYMPHOMA VIA INTRAVENOUS NOT OTHERWISE SPE
     Route: 064
     Dates: start: 20170814, end: 20170926
  5. CYTARABINE. [Suspect]
     Active Substance: CYTARABINE
     Indication: FOETAL EXPOSURE DURING PREGNANCY
     Dosage: MOTHER DOSE: CYCLICAL TREATMENT WITH 30 MG FOR BURKITT^S LYMPHOMA VIA UNKNOWN ROUTE
     Route: 064
     Dates: start: 20170814, end: 20170926
  6. DOXORUBICIN [Suspect]
     Active Substance: DOXORUBICIN
     Indication: FOETAL EXPOSURE DURING PREGNANCY
     Dosage: MOTHER DOSE: CYCLICAL TREATMENT WITH 96.5 MG FOR BURKITT^S LYMPHOMA VIA INTRAVENOUS NOT OTHERWISE SP
     Route: 064
     Dates: start: 20170814, end: 20170926
  7. METHOTREXATE. [Suspect]
     Active Substance: METHOTREXATE
     Indication: FOETAL EXPOSURE DURING PREGNANCY
     Dosage: MOTHER DOSE: CYCLICAL TREATMENT WITH 12 MG FOR BURKITT^S LYMPHOMA VIA UNKNOWN ROUTE
     Route: 064
     Dates: start: 20170814, end: 20170926
  8. GENOXAL [Suspect]
     Active Substance: CYCLOPHOSPHAMIDE
     Indication: FOETAL EXPOSURE DURING PREGNANCY
     Dosage: MOTHER DOSE: CYCLICAL TREATMENT WITH 1448 MG FOR BURKITT^S LYMPHOMA VIA INTRAVENOUS NOT OTHERWISE SP
     Route: 064
     Dates: start: 20170814, end: 20170926
  9. HYDROCORTISONE. [Suspect]
     Active Substance: HYDROCORTISONE
     Indication: FOETAL EXPOSURE DURING PREGNANCY
     Dosage: MOTHER DOSE: CYCLICAL TREATMENT WITH 20 MG FOR BURKITT^S LYMPHOMA VIA UNKNOWN ROUTE
     Route: 064
     Dates: start: 20170814, end: 20170926

REACTIONS (2)
  - Foetal exposure during pregnancy [Recovered/Resolved]
  - Congenital cardiovascular anomaly [Recovering/Resolving]

NARRATIVE: CASE EVENT DATE: 20170814
